FAERS Safety Report 8118492-3 (Version None)
Quarter: 2012Q1

REPORT INFORMATION
  Report Type: 
  Country: None (occurrence: None)
  Receive Date: 20120207
  Receipt Date: 20120202
  Transmission Date: 20120608
  Serious: Yes (Other)
  Sender: FDA-Public Use
  Company Number: CA-PFIZER INC-2012003735

PATIENT
  Age: 21 Year
  Sex: Male
  Weight: 63.492 kg

DRUGS (4)
  1. IBUPROFEN (ADVIL) [Suspect]
  2. NEO CITRAN ^NOVARTIS^ [Suspect]
     Indication: NASOPHARYNGITIS
     Dosage: UNK
     Dates: start: 20120101, end: 20120104
  3. ADVIL COLD AND SINUS [Suspect]
     Indication: NASAL CONGESTION
     Dosage: EVERY 4 TO 6 HOURS
     Dates: start: 20120101, end: 20120104
  4. TYLENOL SINUS [Suspect]
     Dosage: UNK
     Dates: start: 20120102

REACTIONS (3)
  - MYOCARDITIS INFECTIOUS [None]
  - PHARYNGITIS STREPTOCOCCAL [None]
  - DEHYDRATION [None]
